FAERS Safety Report 9191207 (Version 2)
Quarter: 2013Q2

REPORT INFORMATION
  Report Type: Spontaneous
  Country: US (occurrence: None)
  Receive Date: 20120703
  Receipt Date: 20121031
  Transmission Date: 20140414
  Serious: Yes (Other)
  Sender: FDA-Public Use
  Company Number: PHEH2012US010582

PATIENT
  Age: 39 Year
  Sex: Male
  Weight: 99.8 kg

DRUGS (6)
  1. GILENYA [Suspect]
     Indication: MULTIPLE SCLEROSIS
     Dosage: 2 DOSES WITHIN MINUTES OF EACH OTHER
     Route: 048
     Dates: start: 20111208
  2. SERTRALINE (SERTRALINE) [Concomitant]
  3. MULTIVITAMINS (ASCORBIC ACID, ERGOCALCIFEROL, FOLIC ACID, NICOTINAMIDE, PANTHENOL, RETINOL, RIBOFLAVIN, THIAMINE HYDROCHLORIDE) [Concomitant]
  4. DEXTROAMPHETAMINE (DEXAMFETAMINE) [Concomitant]
  5. ALPRAZOLAM (ALPRAZOLAM) [Concomitant]
  6. OXYCODONE W/PARACETAMOL (OXYCODONE, PARACETAMOL) [Concomitant]

REACTIONS (9)
  - Hyperhidrosis [None]
  - Overdose [None]
  - Lymphocyte count decreased [None]
  - Pallor [None]
  - Vitamin B6 decreased [None]
  - C-reactive protein increased [None]
  - Neutrophil count increased [None]
  - Alanine aminotransferase increased [None]
  - Accidental overdose [None]
